FAERS Safety Report 25455754 (Version 1)
Quarter: 2025Q2

REPORT INFORMATION
  Report Type: Report from Study
  Country: KR (occurrence: KR)
  Receive Date: 20250619
  Receipt Date: 20250619
  Transmission Date: 20250717
  Serious: Yes (Hospitalization)
  Sender: TAKEDA
  Company Number: KR-TAKEDA-2025TUS055956

PATIENT
  Age: 35 Year
  Sex: Male
  Weight: 72 kg

DRUGS (10)
  1. VEDOLIZUMAB [Suspect]
     Active Substance: VEDOLIZUMAB
     Indication: Crohn^s disease
     Dosage: 108 MILLIGRAM, QD
     Dates: start: 20241230
  2. VEDOLIZUMAB [Suspect]
     Active Substance: VEDOLIZUMAB
     Indication: Colitis ulcerative
  3. QUETIAPINE FUMARATE [Concomitant]
     Active Substance: QUETIAPINE FUMARATE
     Indication: Bipolar disorder
     Dosage: 50 MILLIGRAM, QD
     Dates: start: 20200128
  4. QUETIAPINE FUMARATE [Concomitant]
     Active Substance: QUETIAPINE FUMARATE
     Dosage: 100 MILLIGRAM, QD
     Dates: start: 20211203
  5. ATIVAN [Concomitant]
     Active Substance: LORAZEPAM
     Indication: Bipolar disorder
     Dosage: 1 MILLIGRAM, QD
     Dates: start: 20210513
  6. Myungin diazepam [Concomitant]
     Indication: Adverse event
     Dates: start: 20250507, end: 20250507
  7. Onseran [Concomitant]
     Indication: Adverse event
     Dates: start: 20250507, end: 20250507
  8. CEFAZOLIN SODIUM [Concomitant]
     Active Substance: CEFAZOLIN SODIUM
     Indication: Adverse event
     Dates: start: 20250507, end: 20250507
  9. PENTASA [Concomitant]
     Active Substance: MESALAMINE
     Indication: Crohn^s disease
     Dosage: UNK UNK, BID
     Dates: start: 20220711
  10. PENTASA [Concomitant]
     Active Substance: MESALAMINE
     Indication: Colitis ulcerative

REACTIONS (1)
  - Skin laceration [Recovered/Resolved]

NARRATIVE: CASE EVENT DATE: 20250507
